FAERS Safety Report 13118638 (Version 1)
Quarter: 2017Q1

REPORT INFORMATION
  Report Type: Other
  Country: US (occurrence: US)
  Receive Date: 20170116
  Receipt Date: 20170116
  Transmission Date: 20170428
  Serious: Yes (Death)
  Sender: FDA-Public Use
  Company Number: US-LEHIGH_VALLEY-USA-POI0580201700072

PATIENT
  Age: 69 Year
  Sex: Female

DRUGS (12)
  1. FISH OIL [Suspect]
     Active Substance: FISH OIL
     Dates: end: 2015
  2. ESTROGENS [Suspect]
     Active Substance: ESTROGENS
     Dates: end: 2015
  3. PROPRANOLOL [Suspect]
     Active Substance: PROPRANOLOL HYDROCHLORIDE
     Dates: end: 2015
  4. QUETIAPINE. [Suspect]
     Active Substance: QUETIAPINE
     Dates: end: 2015
  5. DESVENLAFAXINE. [Suspect]
     Active Substance: DESVENLAFAXINE
     Dates: end: 2015
  6. LEVOMILNACIPRAN [Suspect]
     Active Substance: LEVOMILNACIPRAN
     Dates: end: 2015
  7. LEVOLET (LEVOTHYROXINE) [Suspect]
     Active Substance: LEVOTHYROXINE
     Dates: end: 2015
  8. TOPIRAMATE. [Suspect]
     Active Substance: TOPIRAMATE
     Dates: end: 2015
  9. ALPRAZOLAM. [Suspect]
     Active Substance: ALPRAZOLAM
     Dates: end: 2015
  10. ACETAMINOPHEN WITH OXYCODONE [Suspect]
     Active Substance: ACETAMINOPHEN\OXYCODONE HYDROCHLORIDE
     Dates: end: 2015
  11. VILAZODONE [Suspect]
     Active Substance: VILAZODONE
     Dates: end: 2015
  12. VORTIOXETINE [Suspect]
     Active Substance: VORTIOXETINE
     Dates: end: 2015

REACTIONS (1)
  - Completed suicide [Fatal]

NARRATIVE: CASE EVENT DATE: 2015
